FAERS Safety Report 4864279-4 (Version None)
Quarter: 2005Q4

REPORT INFORMATION
  Report Type: 
  Country: None (occurrence: None)
  Receive Date: 20051222
  Receipt Date: 20051214
  Transmission Date: 20060501
  Serious: Yes (Death, Other)
  Sender: FDA-Public Use
  Company Number: JP-AVENTIS-200513809JP

PATIENT

DRUGS (5)
  1. TAXOTERE [Suspect]
     Indication: NON-SMALL CELL LUNG CANCER
     Route: 041
  2. CISPLATIN [Concomitant]
  3. UFT [Concomitant]
  4. CBDCA [Concomitant]
  5. RADIOTHERAPY [Concomitant]

REACTIONS (3)
  - CEREBRAL HAEMORRHAGE [None]
  - DISEASE RECURRENCE [None]
  - NON-SMALL CELL LUNG CANCER [None]
